FAERS Safety Report 15704695 (Version 1)
Quarter: 2018Q4

REPORT INFORMATION
  Report Type: Spontaneous
  Country: FR (occurrence: FR)
  Receive Date: 20181210
  Receipt Date: 20181210
  Transmission Date: 20190205
  Serious: Yes (Life-Threatening)
  Sender: FDA-Public Use
  Company Number: FR-SA-2018SA333638

PATIENT
  Age: 77 Year
  Sex: Female

DRUGS (3)
  1. EXACYL [Suspect]
     Active Substance: TRANEXAMIC ACID
     Indication: HYPOTENSION
     Dosage: 1 G
     Route: 042
     Dates: start: 20181019, end: 20181019
  2. NORADRENALINE [NOREPINEPHRINE] [Suspect]
     Active Substance: NOREPINEPHRINE
     Indication: HYPOTENSION
     Dosage: 2.81 MG
     Route: 042
     Dates: start: 20181019, end: 20181019
  3. PHENYLEPHRINE HYDROCHLORIDE. [Suspect]
     Active Substance: PHENYLEPHRINE HYDROCHLORIDE
     Indication: HYPOTENSION
     Dosage: 50 UG
     Route: 042
     Dates: start: 20181019, end: 20181019

REACTIONS (1)
  - Ischaemic stroke [Recovering/Resolving]

NARRATIVE: CASE EVENT DATE: 20181019
